FAERS Safety Report 7889741-1 (Version None)
Quarter: 2011Q4

REPORT INFORMATION
  Report Type: 
  Country: None (occurrence: None)
  Receive Date: 20111103
  Receipt Date: 20111101
  Transmission Date: 20120403
  Serious: Yes (Hospitalization, Other)
  Sender: FDA-Public Use
  Company Number: BR-ABBOTT-11P-020-0870048-00

PATIENT
  Sex: Male
  Weight: 87 kg

DRUGS (2)
  1. HUMIRA [Suspect]
     Indication: ANKYLOSING SPONDYLITIS
     Route: 058
     Dates: start: 20100101
  2. METHOTREXATE [Concomitant]
     Indication: ANKYLOSING SPONDYLITIS
     Route: 048

REACTIONS (1)
  - VARICOCELE [None]
